FAERS Safety Report 25780831 (Version 2)
Quarter: 2025Q4

REPORT INFORMATION
  Report Type: Report from Study
  Country: CA (occurrence: CA)
  Receive Date: 20250909
  Receipt Date: 20251030
  Transmission Date: 20260117
  Serious: Yes (Hospitalization, Other)
  Sender: HLS THERAPEUTICS
  Company Number: CA-HLS-202502227

PATIENT
  Age: 67 Year
  Sex: Male

DRUGS (1)
  1. CLOZARIL [Suspect]
     Active Substance: CLOZAPINE
     Indication: Schizophrenia
     Route: 048
     Dates: start: 20001115, end: 20250819

REACTIONS (6)
  - Decreased appetite [Unknown]
  - Rest regimen [Unknown]
  - Constipation [Recovered/Resolved]
  - Epilepsy [Unknown]
  - Infection [Unknown]
  - Pneumonia [Unknown]
